FAERS Safety Report 12257484 (Version 1)
Quarter: 2016Q2

REPORT INFORMATION
  Report Type: Spontaneous
  Country: MX (occurrence: MX)
  Receive Date: 20160412
  Receipt Date: 20160412
  Transmission Date: 20160815
  Serious: Yes (Other)
  Sender: FDA-Public Use
  Company Number: MX-SA-2016SA067757

PATIENT
  Age: 73 Year
  Sex: Female
  Weight: 45 kg

DRUGS (10)
  1. PLAVIX [Suspect]
     Active Substance: CLOPIDOGREL BISULFATE
     Indication: THROMBOSIS PROPHYLAXIS
     Route: 048
     Dates: start: 2012
  2. SENOKOT [Concomitant]
     Active Substance: SENNOSIDES
     Indication: CONSTIPATION
     Dosage: STRENGTH: 374 MG OF AB SENNOSIDES
     Route: 048
     Dates: start: 1982
  3. ZAPEX [Concomitant]
     Indication: DEPRESSION
     Route: 048
     Dates: start: 1998
  4. CYMBALTA [Concomitant]
     Active Substance: DULOXETINE HYDROCHLORIDE
     Indication: DEPRESSION
     Route: 048
     Dates: start: 1998
  5. RIVOTRIL [Concomitant]
     Active Substance: CLONAZEPAM
     Indication: DEPRESSION
     Route: 048
     Dates: start: 1998
  6. ALLEGRA [Suspect]
     Active Substance: FEXOFENADINE HYDROCHLORIDE
     Indication: RASH
     Route: 048
     Dates: start: 201512
  7. ALLEGRA [Suspect]
     Active Substance: FEXOFENADINE HYDROCHLORIDE
     Indication: PRURITUS
     Route: 048
     Dates: start: 201512
  8. EXFORGE [Concomitant]
     Active Substance: AMLODIPINE BESYLATE\VALSARTAN
     Indication: HYPERTENSION
     Dosage: 150 MG OF AMLODIPINE + 150 MG OF VALSARTAN
     Route: 048
  9. CRESTOR [Concomitant]
     Active Substance: ROSUVASTATIN CALCIUM
     Indication: DYSLIPIDAEMIA
     Dosage: STRENGTH: 10 MG
     Route: 048
     Dates: start: 1992
  10. LAXOYA [Concomitant]
     Indication: CONSTIPATION
     Dosage: STRENGTH: 8.6 SENNOSIDES + 50 MG OF DOCUSATE SODIUM
     Route: 048
     Dates: start: 1982

REACTIONS (4)
  - Rib fracture [Not Recovered/Not Resolved]
  - Overdose [Unknown]
  - Fall [Not Recovered/Not Resolved]
  - Anxiety [Not Recovered/Not Resolved]

NARRATIVE: CASE EVENT DATE: 201512
